FAERS Safety Report 5751682-3 (Version None)
Quarter: 2008Q2

REPORT INFORMATION
  Report Type: 
  Country: None (occurrence: None)
  Receive Date: 20080528
  Receipt Date: 20080522
  Transmission Date: 20081010
  Serious: Yes (Death)
  Sender: FDA-Public Use
  Company Number: PHHO2008FR03150

PATIENT
  Sex: Male

DRUGS (3)
  1. RAD 666 RAD+TAB+PTR [Suspect]
     Indication: HEART TRANSPLANT
     Dosage: UNK
     Route: 048
     Dates: start: 20080114, end: 20080211
  2. NEORAL [Suspect]
     Dosage: UNK
     Route: 048
     Dates: start: 20080114
  3. PREDNISONE [Suspect]

REACTIONS (1)
  - BRONCHOPULMONARY ASPERGILLOSIS [None]
